FAERS Safety Report 10456459 (Version 1)
Quarter: 2014Q3

REPORT INFORMATION
  Report Type: Report from Study
  Country: US (occurrence: US)
  Receive Date: 20140916
  Receipt Date: 20140916
  Transmission Date: 20150326
  Serious: Yes (Hospitalization)
  Sender: FDA-Public Use
  Company Number: US-TEVA-507973USA

PATIENT
  Age: 61 Year
  Sex: Male
  Weight: 80.59 kg

DRUGS (4)
  1. FLUOROURACIL. [Suspect]
     Active Substance: FLUOROURACIL
     Indication: COLON CANCER
     Route: 042
     Dates: end: 20110616
  2. CELECOXIB;PLACEBO [Suspect]
     Active Substance: CELECOXIB\PLACEBO
     Route: 048
  3. OXALIPLATIN INJECTION 50MG/10 ML+100MG/20ML [Suspect]
     Active Substance: OXALIPLATIN
     Indication: COLON CANCER
     Route: 042
     Dates: end: 20110614
  4. LEUCOVORIN [Concomitant]
     Active Substance: LEUCOVORIN
     Dates: end: 20110614

REACTIONS (22)
  - Syncope [None]
  - Cognitive disorder [None]
  - General physical health deterioration [None]
  - Hyponatraemia [None]
  - Dysphagia [None]
  - Head injury [None]
  - Confusional state [None]
  - Dizziness [None]
  - Hypertension [None]
  - Choking [None]
  - Anhedonia [None]
  - Mental status changes [None]
  - Loss of consciousness [None]
  - Pyrexia [None]
  - Meningitis viral [Recovered/Resolved]
  - Fall [None]
  - Headache [None]
  - Haemorrhage intracranial [None]
  - Respiratory failure [None]
  - Brain injury [None]
  - Diabetes mellitus [None]
  - Depression [None]

NARRATIVE: CASE EVENT DATE: 20110624
